FAERS Safety Report 15072419 (Version 1)
Quarter: 2018Q2

REPORT INFORMATION
  Report Type: Report from Study
  Country: None (occurrence: ES)
  Receive Date: 20180626
  Receipt Date: 20180626
  Transmission Date: 20180711
  Serious: Yes (Other)
  Sender: FDA-Public Use
  Company Number: ES-ABBVIE-18K-144-2363623-00

PATIENT
  Age: 50 Year
  Sex: Female
  Weight: 82 kg

DRUGS (8)
  1. DUODOPA [Suspect]
     Active Substance: CARBIDOPA\LEVODOPA
     Indication: PARKINSON^S DISEASE
     Route: 050
     Dates: start: 20180620
  2. PANTOPRAZOL [Concomitant]
     Active Substance: PANTOPRAZOLE SODIUM
     Indication: PRODUCT USED FOR UNKNOWN INDICATION
     Route: 048
  3. TOVIAZ [Concomitant]
     Active Substance: FESOTERODINE FUMARATE
     Indication: PRODUCT USED FOR UNKNOWN INDICATION
     Route: 048
  4. SINEMET RETARD [Concomitant]
     Indication: PARKINSON^S DISEASE
     Dates: end: 20180521
  5. VENLAFAXINA [Concomitant]
     Active Substance: VENLAFAXINE HYDROCHLORIDE
     Indication: PRODUCT USED FOR UNKNOWN INDICATION
     Route: 048
  6. DUODOPA [Suspect]
     Active Substance: CARBIDOPA\LEVODOPA
     Indication: MULTIPLE SYSTEM ATROPHY
     Route: 050
     Dates: start: 20180522, end: 2018
  7. TRANXILIUM [Concomitant]
     Active Substance: CLORAZEPATE DIPOTASSIUM
     Indication: PRODUCT USED FOR UNKNOWN INDICATION
     Route: 048
  8. SINEMET RETARD [Concomitant]
     Indication: MULTIPLE SYSTEM ATROPHY

REACTIONS (2)
  - Intentional product use issue [Not Recovered/Not Resolved]
  - Gastrostomy [Unknown]

NARRATIVE: CASE EVENT DATE: 20180522
